FAERS Safety Report 9290951 (Version 1)
Quarter: 2013Q2

REPORT INFORMATION
  Report Type: Spontaneous
  Country: DE (occurrence: DE)
  Receive Date: 20130515
  Receipt Date: 20130515
  Transmission Date: 20140414
  Serious: Yes (Death, Hospitalization)
  Sender: FDA-Public Use
  Company Number: PHHY2013DE047631

PATIENT
  Age: 21 Year
  Sex: Female

DRUGS (1)
  1. ACETYLSALICYLIC ACID [Suspect]
     Dosage: 300 MG, 2-3 TIMES A DAY (CUMULATIVE DOSE OF EIGHT TABLETS )

REACTIONS (15)
  - Brain oedema [Fatal]
  - Hepatic encephalopathy [Fatal]
  - Brain herniation [Unknown]
  - Reye^s syndrome [Unknown]
  - Altered state of consciousness [Unknown]
  - Agitation [Unknown]
  - Acute hepatic failure [Unknown]
  - Irritability [Unknown]
  - Confusional state [Unknown]
  - Delirium [Unknown]
  - Nausea [Unknown]
  - Loss of consciousness [Unknown]
  - Nervous system disorder [Unknown]
  - Vomiting [Unknown]
  - Anxiety [Unknown]
